FAERS Safety Report 9618018 (Version 2)
Quarter: 2013Q4

REPORT INFORMATION
  Report Type: Report from Study
  Country: US (occurrence: US)
  Receive Date: 20131011
  Receipt Date: 20131211
  Transmission Date: 20140711
  Serious: Yes (Other)
  Sender: FDA-Public Use
  Company Number: US-ROCHE-1287766

PATIENT
  Age: 39 Year
  Sex: Female

DRUGS (5)
  1. XOLAIR [Suspect]
     Indication: URTICARIA
     Route: 058
  2. DILTIAZEM [Concomitant]
     Route: 065
  3. IBUPROFEN [Concomitant]
     Dosage: PRN
     Route: 065
  4. OMEPRAZOLE [Concomitant]
     Route: 065
  5. CYCLOSPORINE [Concomitant]
     Dosage: OPTHALAMIC EMURSION 1GTT IN BOTH EYES
     Route: 065

REACTIONS (8)
  - Urticaria [Unknown]
  - Pruritus [Unknown]
  - Angioedema [Unknown]
  - Urticaria [Unknown]
  - Diarrhoea [Unknown]
  - Flushing [Unknown]
  - Oral herpes [Unknown]
  - Blood cholesterol increased [Unknown]
